FAERS Safety Report 7589826-3 (Version None)
Quarter: 2011Q3

REPORT INFORMATION
  Report Type: 
  Country: None (occurrence: None)
  Receive Date: 20110705
  Receipt Date: 20110701
  Transmission Date: 20111222
  Serious: Yes (Life-Threatening)
  Sender: FDA-Public Use
  Company Number: FR-SANOFI-AVENTIS-2011SA041771

PATIENT
  Age: 62 Year
  Sex: Male

DRUGS (2)
  1. PLAVIX [Suspect]
     Route: 048
     Dates: end: 20110415
  2. PREVISCAN [Interacting]
     Route: 048
     Dates: end: 20110415

REACTIONS (2)
  - CARDIAC TAMPONADE [None]
  - DRUG INTERACTION [None]
